FAERS Safety Report 11012985 (Version 1)
Quarter: 2015Q2

REPORT INFORMATION
  Report Type: Spontaneous
  Country: None (occurrence: None)
  Receive Date: 20150409
  Receipt Date: 20150409
  Transmission Date: 20150821
  Serious: Yes (Other)
  Sender: FDA-Public Use
  Company Number: FR-SEPTODONT-2015-02717

PATIENT
  Age: 50 Year
  Sex: Female

DRUGS (2)
  1. XOGEL (LIDOCAINE\CETRIMIDE) [Suspect]
     Active Substance: CETRIMIDE\LIDOCAINE
     Indication: LOCAL ANAESTHESIA
     Route: 004
  2. SEPTANEST [Suspect]
     Active Substance: ARTICAINE HYDROCHLORIDE\EPINEPHRINE BITARTRATE
     Indication: LOCAL ANAESTHESIA
     Route: 004

REACTIONS (7)
  - Pyrexia [None]
  - Dermatitis bullous [None]
  - Dyspnoea [None]
  - Hypersensitivity [None]
  - Malaise [None]
  - Injection site rash [None]
  - Angioedema [None]
